FAERS Safety Report 5411452-2 (Version None)
Quarter: 2007Q3

REPORT INFORMATION
  Report Type: 
  Country: None (occurrence: None)
  Receive Date: 20070810
  Receipt Date: 20070802
  Transmission Date: 20080115
  Serious: Yes (Life-Threatening, Hospitalization)
  Sender: FDA-Public Use
  Company Number: ES-GENENTECH-243276

PATIENT
  Sex: Male
  Weight: 102 kg

DRUGS (3)
  1. BEVACIZUMAB [Suspect]
     Indication: COLORECTAL CANCER METASTATIC
     Dosage: 765 MG, Q3W
     Route: 042
     Dates: start: 20070523, end: 20070629
  2. CAPECITABINE [Suspect]
     Indication: COLORECTAL CANCER METASTATIC
     Dosage: 750 MG/M2, UNK
     Route: 048
     Dates: start: 20070523, end: 20070629
  3. OXALIPLATIN [Suspect]
     Indication: COLORECTAL CANCER METASTATIC
     Dosage: 284 MG, Q3W
     Route: 042
     Dates: start: 20070523, end: 20070629

REACTIONS (1)
  - RENAL FAILURE [None]
